FAERS Safety Report 10019883 (Version 1)
Quarter: 2014Q1

REPORT INFORMATION
  Report Type: Spontaneous
  Country: US (occurrence: US)
  Receive Date: 20140318
  Receipt Date: 20140318
  Transmission Date: 20141002
  Serious: No
  Sender: FDA-Public Use
  Company Number: US-GALDERMA-US14000230

PATIENT
  Age: 47 Year
  Sex: Male

DRUGS (5)
  1. MIRVASO (BRIMONIDINE) TOPICAL GEL, 0.33% [Suspect]
     Indication: ROSACEA
     Dosage: 0.33%
     Route: 061
     Dates: start: 20131231, end: 20140114
  2. SULFUR TYPE PRODUCT [Suspect]
     Indication: ROSACEA
     Route: 061
     Dates: start: 2000, end: 2000
  3. LEVER SOAP [Concomitant]
     Indication: THERAPEUTIC SKIN CARE TOPICAL
     Route: 061
  4. COAST SOAP [Concomitant]
     Route: 061
  5. ARRID EXTRA DRY DEODORANT [Concomitant]
     Route: 061

REACTIONS (7)
  - Rebound effect [Recovered/Resolved]
  - Rash erythematous [Recovered/Resolved]
  - Pallor [Recovered/Resolved]
  - Skin warm [Recovered/Resolved]
  - Flushing [Recovered/Resolved]
  - Skin burning sensation [Recovered/Resolved]
  - Erythema [Recovering/Resolving]
